FAERS Safety Report 23085104 (Version 1)
Quarter: 2023Q4

REPORT INFORMATION
  Report Type: Spontaneous
  Country: US (occurrence: None)
  Receive Date: 20231017
  Receipt Date: 20231017
  Transmission Date: 20240109
  Serious: Yes (Hospitalization)
  Sender: FDA-Public Use
  Company Number: None

PATIENT
  Age: 75 Year
  Sex: Male

DRUGS (2)
  1. BACLOFEN [Suspect]
     Active Substance: BACLOFEN
     Dates: start: 20230117, end: 20230117
  2. KEFLEX [Suspect]
     Active Substance: CEPHALEXIN
     Dates: end: 20230117

REACTIONS (4)
  - Confusional state [None]
  - Mental status changes [None]
  - Metabolic encephalopathy [None]
  - Procedural pain [None]

NARRATIVE: CASE EVENT DATE: 20230119
